FAERS Safety Report 5080713-1 (Version None)
Quarter: 2006Q3

REPORT INFORMATION
  Report Type: 
  Country: None (occurrence: None)
  Receive Date: 20060809
  Receipt Date: 20060727
  Transmission Date: 20061208
  Serious: Yes (Hospitalization)
  Sender: FDA-Public Use
  Company Number: HQWYE515231JUL06

PATIENT
  Age: 77 Year
  Sex: Female

DRUGS (5)
  1. ARTANE [Suspect]
     Indication: DEPRESSION
     Dosage: 2 + 4MG 1X PER 1 DAY ORAL - SEE IMAGE
     Route: 048
  2. BIPERIDEN (BIPERIDEN, ) [Suspect]
     Dosage: 2 + 1 MG 1X PER 1 DAY  ORAL- SEE IMAGE
     Route: 048
  3. DIAZEPAM [Suspect]
     Dosage: 3.5 + 7 MG 1X PER 1 DAY ORAL - SEE IMAGE
     Route: 048
  4. SULPIRIDE               (SULPIRIDE) [Concomitant]
  5. DONEPEZIL HCL [Concomitant]
     Dosage: 5MG 1XPER 1 DAY

REACTIONS (9)
  - ABNORMAL BEHAVIOUR [None]
  - AMNESIA [None]
  - DELIRIUM [None]
  - DELUSION [None]
  - DEPRESSION [None]
  - DISORIENTATION [None]
  - DRUG EFFECT DECREASED [None]
  - HALLUCINATION, VISUAL [None]
  - SENILE DEMENTIA [None]
